FAERS Safety Report 5886313-5 (Version None)
Quarter: 2008Q3

REPORT INFORMATION
  Report Type: 
  Country: None (occurrence: None)
  Receive Date: 20080917
  Receipt Date: 20080912
  Transmission Date: 20090109
  Serious: Yes (Other)
  Sender: FDA-Public Use
  Company Number: A0747261A

PATIENT

DRUGS (2)
  1. FLOVENT [Suspect]
     Indication: ASTHMA
     Route: 055
  2. UNKNOWN [Concomitant]

REACTIONS (1)
  - HALLUCINATION [None]
